FAERS Safety Report 5226265-4 (Version None)
Quarter: 2007Q1

REPORT INFORMATION
  Report Type: 
  Country: None (occurrence: None)
  Receive Date: 20070201
  Receipt Date: 20070129
  Transmission Date: 20070707
  Serious: Yes (Death)
  Sender: FDA-Public Use
  Company Number: US-MERCK-0612USA02397

PATIENT
  Sex: Male

DRUGS (2)
  1. CANCIDAS [Suspect]
     Indication: FUNGAL ENDOCARDITIS
     Route: 042
     Dates: start: 20061101
  2. FLUCONAZOLE [Concomitant]
     Route: 065
     Dates: end: 20061101

REACTIONS (4)
  - DRUG INEFFECTIVE [None]
  - FUNGAL ENDOCARDITIS [None]
  - NEOPLASM [None]
  - PHLEBITIS [None]
